FAERS Safety Report 4630696-0 (Version None)
Quarter: 2005Q2

REPORT INFORMATION
  Report Type: 
  Country: None (occurrence: None)
  Receive Date: 20050406
  Receipt Date: 20050322
  Transmission Date: 20051028
  Serious: Yes (Other)
  Sender: FDA-Public Use
  Company Number: B0375654A

PATIENT
  Age: 14 Year
  Sex: Male

DRUGS (3)
  1. MYLERAN [Suspect]
     Dosage: SEE DOSAGE TEXT, ORAL
     Route: 048
  2. THIOTEPA [Suspect]
     Dosage: INTRAVENOUS
     Route: 042
  3. GRANULOCYTE [Concomitant]

REACTIONS (3)
  - FEBRILE NEUTROPENIA [None]
  - GASTROINTESTINAL TOXICITY [None]
  - SEPSIS [None]
